FAERS Safety Report 6462689-5 (Version None)
Quarter: 2009Q4

REPORT INFORMATION
  Report Type: 
  Country: None (occurrence: None)
  Receive Date: 20091130
  Receipt Date: 20091116
  Transmission Date: 20100525
  Serious: Yes (Other)
  Sender: FDA-Public Use
  Company Number: US-SANOFI-AVENTIS-A03200904977

PATIENT
  Age: 62 Year
  Sex: Male
  Weight: 99.79 kg

DRUGS (9)
  1. DRONEDARONE [Suspect]
     Indication: ATRIAL FIBRILLATION
     Dosage: UNIT DOSE: 400 MG
     Route: 048
     Dates: start: 20091018, end: 20091022
  2. NORVASC [Concomitant]
     Route: 048
     Dates: start: 20030915
  3. BETAPACE [Concomitant]
     Route: 048
     Dates: start: 19970703, end: 20091016
  4. BETAPACE [Concomitant]
     Route: 048
     Dates: start: 20091024
  5. PRINIVIL [Concomitant]
     Route: 048
     Dates: start: 19911206
  6. COUMADIN [Concomitant]
     Dosage: 1 AND 1/2 DAILY BY MOUTH EXCEPT 1 ON MONDAY , WED AND FRI OR AS DIRECTED  PENDING  INR LAB VALUES
     Route: 048
     Dates: start: 20060619
  7. CRESTOR [Concomitant]
     Route: 048
     Dates: start: 20050309
  8. PRILOSEC [Concomitant]
     Route: 048
     Dates: start: 20080309
  9. MAGNESIUM [Concomitant]
     Dates: start: 20090401

REACTIONS (3)
  - ELECTROCARDIOGRAM ABNORMAL [None]
  - HEART RATE IRREGULAR [None]
  - MALAISE [None]
